FAERS Safety Report 15778028 (Version 4)
Quarter: 2019Q1

REPORT INFORMATION
  Report Type: Spontaneous
  Country: CA (occurrence: CA)
  Receive Date: 20181231
  Receipt Date: 20190318
  Transmission Date: 20190417
  Serious: Yes (Other)
  Sender: FDA-Public Use
  Company Number: CA-PFIZER INC-2017406776

PATIENT
  Age: 56 Year
  Sex: Female

DRUGS (10)
  1. XELJANZ [Suspect]
     Active Substance: TOFACITINIB CITRATE
     Indication: RHEUMATOID ARTHRITIS
     Dosage: 5 MG, 2X/DAY
     Route: 048
     Dates: start: 20170911, end: 201712
  2. XELJANZ [Suspect]
     Active Substance: TOFACITINIB CITRATE
     Dosage: 5 MG, 1X/DAY
     Route: 048
     Dates: start: 20180829, end: 2018
  3. XELJANZ [Suspect]
     Active Substance: TOFACITINIB CITRATE
     Dosage: 5 MG, 2X/DAY
     Route: 048
     Dates: start: 20180722, end: 20180829
  4. PREDNISONE. [Concomitant]
     Active Substance: PREDNISONE
     Indication: RHEUMATOID ARTHRITIS
     Dosage: UNK
     Dates: start: 2018
  5. XELJANZ [Suspect]
     Active Substance: TOFACITINIB CITRATE
     Dosage: 5 MG, 2X/DAY
     Route: 048
     Dates: start: 2018
  6. XELJANZ [Suspect]
     Active Substance: TOFACITINIB CITRATE
     Dosage: 5 MG, 2X/DAY
     Route: 048
     Dates: start: 2018, end: 201806
  7. XELJANZ [Suspect]
     Active Substance: TOFACITINIB CITRATE
     Dosage: 5 MG, 2X/DAY
     Route: 048
     Dates: start: 2018, end: 20181221
  8. METHOTREXATE. [Concomitant]
     Active Substance: METHOTREXATE
     Indication: RHEUMATOID ARTHRITIS
     Dosage: 10 MG, UNK
  9. XELJANZ [Suspect]
     Active Substance: TOFACITINIB CITRATE
     Dosage: 5 MG, 1X/DAY
     Route: 048
     Dates: start: 201712, end: 2018
  10. PERCOCET [Concomitant]
     Active Substance: ACETAMINOPHEN\OXYCODONE HYDROCHLORIDE
     Indication: PAIN
     Dosage: UNK

REACTIONS (25)
  - Therapeutic response unexpected [Unknown]
  - Blood cholesterol increased [Unknown]
  - Nasal disorder [Unknown]
  - Drug effect decreased [Recovering/Resolving]
  - Product dose omission [Unknown]
  - Vertigo [Unknown]
  - Urinary incontinence [Not Recovered/Not Resolved]
  - Pneumonia [Unknown]
  - Oropharyngeal pain [Unknown]
  - Muscle twitching [Unknown]
  - Dry mouth [Unknown]
  - Migraine [Recovering/Resolving]
  - Memory impairment [Not Recovered/Not Resolved]
  - Cognitive disorder [Not Recovered/Not Resolved]
  - Lymphocyte count increased [Unknown]
  - Fall [Unknown]
  - Stomatitis [Recovered/Resolved]
  - Pre-existing condition improved [Unknown]
  - Nasopharyngitis [Unknown]
  - Tooth abscess [Not Recovered/Not Resolved]
  - Condition aggravated [Unknown]
  - Nausea [Not Recovered/Not Resolved]
  - Head injury [Unknown]
  - Dizziness [Recovered/Resolved]
  - Candida infection [Not Recovered/Not Resolved]

NARRATIVE: CASE EVENT DATE: 201709
